FAERS Safety Report 14782358 (Version 3)
Quarter: 2018Q3

REPORT INFORMATION
  Report Type: Spontaneous
  Country: US (occurrence: US)
  Receive Date: 20180420
  Receipt Date: 20180813
  Transmission Date: 20181010
  Serious: No
  Sender: FDA-Public Use
  Company Number: US-PFIZER INC-2018162426

PATIENT
  Age: 56 Year
  Sex: Female
  Weight: 67.59 kg

DRUGS (1)
  1. CHANTIX [Suspect]
     Active Substance: VARENICLINE TARTRATE
     Indication: SMOKING CESSATION THERAPY
     Dosage: 1 MG, 2X/DAY
     Dates: start: 20180316

REACTIONS (6)
  - Aggression [Unknown]
  - Weight increased [Unknown]
  - Feeling abnormal [Unknown]
  - Weight decreased [Unknown]
  - Increased appetite [Unknown]
  - Abnormal dreams [Not Recovered/Not Resolved]

NARRATIVE: CASE EVENT DATE: 201806
